FAERS Safety Report 5569673-4 (Version None)
Quarter: 2007Q4

REPORT INFORMATION
  Report Type: 
  Country: None (occurrence: None)
  Receive Date: 20071220
  Receipt Date: 20071210
  Transmission Date: 20080405
  Serious: Yes (Hospitalization)
  Sender: FDA-Public Use
  Company Number: B0500286A

PATIENT
  Age: 80 Year
  Sex: Male

DRUGS (10)
  1. AUGMENTIN '125' [Suspect]
     Indication: ERYSIPELAS
     Dosage: 3G PER DAY
     Route: 042
     Dates: start: 20071015
  2. SINTROM [Suspect]
     Route: 048
     Dates: end: 20071025
  3. VASTAREL [Concomitant]
     Dosage: 3TAB PER DAY
     Route: 048
  4. FUROSEMIDE [Concomitant]
     Dosage: 1UNIT PER DAY
     Route: 065
  5. RAMIPRIL [Concomitant]
     Dosage: 5MG PER DAY
     Route: 065
  6. COLCHICINE [Concomitant]
     Dosage: 1UNIT PER DAY
     Route: 065
  7. IMODIUM [Concomitant]
     Route: 065
  8. MOPRAL [Concomitant]
     Dosage: 1UNIT PER DAY
     Route: 065
  9. MORPHINE SUL INJ [Concomitant]
     Dosage: 30MG TWICE PER DAY
     Route: 065
  10. ACTISKENAN [Concomitant]
     Dosage: 5MG FOUR TIMES PER DAY
     Route: 065

REACTIONS (6)
  - ANAEMIA [None]
  - BLOOD CREATININE INCREASED [None]
  - HYPOPROTHROMBINAEMIA [None]
  - INTERNATIONAL NORMALISED RATIO INCREASED [None]
  - MUSCLE HAEMORRHAGE [None]
  - RENAL FAILURE [None]
